FAERS Safety Report 16863720 (Version 6)
Quarter: 2021Q1

REPORT INFORMATION
  Report Type: Spontaneous
  Country: JP (occurrence: JP)
  Receive Date: 20190927
  Receipt Date: 20210112
  Transmission Date: 20210419
  Serious: Yes (Hospitalization, Disabling, Other)
  Sender: FDA-Public Use
  Company Number: JP-BRISTOL-MYERS SQUIBB COMPANY-BMS-2019-091119

PATIENT
  Age: 69 Year
  Sex: Male
  Weight: 56 kg

DRUGS (4)
  1. DOXAZOSIN [Concomitant]
     Active Substance: DOXAZOSIN MESYLATE
     Indication: PRODUCT USED FOR UNKNOWN INDICATION
     Route: 065
  2. AMLODIPINE [AMLODIPINE BESILATE] [Concomitant]
     Active Substance: AMLODIPINE BESYLATE
     Indication: PRODUCT USED FOR UNKNOWN INDICATION
     Dosage: UNK
     Route: 065
  3. YERVOY [Suspect]
     Active Substance: IPILIMUMAB
     Indication: RENAL CANCER
     Dosage: 54.2 MILLIGRAM
     Route: 041
     Dates: start: 20190725
  4. OPDIVO [Suspect]
     Active Substance: NIVOLUMAB
     Indication: RENAL CANCER
     Dosage: 240 MILLIGRAM
     Route: 041
     Dates: start: 20190725

REACTIONS (3)
  - Off label use [Unknown]
  - Toxic epidermal necrolysis [Unknown]
  - Stevens-Johnson syndrome [Recovering/Resolving]

NARRATIVE: CASE EVENT DATE: 20190801
